FAERS Safety Report 24898126 (Version 2)
Quarter: 2025Q1

REPORT INFORMATION
  Report Type: Spontaneous
  Country: US (occurrence: US)
  Receive Date: 20250129
  Receipt Date: 20250317
  Transmission Date: 20250408
  Serious: No
  Sender: GRAVITI PHARMACEUTICALS PRIVATE LIMITED
  Company Number: US-GRAVITIPHARMA-GRA-2412-US-SPO-0710

PATIENT

DRUGS (1)
  1. BUPROPION HYDROCHLORIDE [Suspect]
     Active Substance: BUPROPION HYDROCHLORIDE
     Indication: Product used for unknown indication
     Route: 065

REACTIONS (8)
  - Anxiety [Unknown]
  - Disturbance in attention [Unknown]
  - Palpitations [Unknown]
  - Tremor [Unknown]
  - Agitation [Unknown]
  - Feeling abnormal [Unknown]
  - Confusional state [Unknown]
  - Drug ineffective [Unknown]
